FAERS Safety Report 16785480 (Version 1)
Quarter: 2019Q3

REPORT INFORMATION
  Report Type: Report from Study
  Country: None (occurrence: US)
  Receive Date: 20190909
  Receipt Date: 20190909
  Transmission Date: 20191005
  Serious: Yes (Other)
  Sender: FDA-Public Use
  Company Number: US-ABBVIE-19K-163-2639634-00

PATIENT
  Sex: Female

DRUGS (1)
  1. HUMIRA [Suspect]
     Active Substance: ADALIMUMAB
     Indication: RHEUMATOID ARTHRITIS
     Route: 058

REACTIONS (13)
  - Gait inability [Unknown]
  - Glaucoma [Unknown]
  - Musculoskeletal stiffness [Unknown]
  - Malaise [Unknown]
  - Injection site pruritus [Unknown]
  - Systemic lupus erythematosus [Unknown]
  - Cataract [Unknown]
  - Pain [Unknown]
  - Burning sensation [Unknown]
  - Feeling abnormal [Unknown]
  - Peripheral swelling [Unknown]
  - Mass [Unknown]
  - Dyspnoea [Not Recovered/Not Resolved]
